FAERS Safety Report 20451639 (Version 1)
Quarter: 2022Q1

REPORT INFORMATION
  Report Type: Spontaneous
  Country: US (occurrence: US)
  Receive Date: 20220209
  Receipt Date: 20220209
  Transmission Date: 20220424
  Serious: No
  Sender: FDA-Public Use
  Company Number: US-NOVARTISTESTPH-NVSC2021US196508

PATIENT
  Sex: Female

DRUGS (1)
  1. PATADAY [Suspect]
     Active Substance: OLOPATADINE HYDROCHLORIDE
     Indication: Product used for unknown indication
     Dosage: 1 DRP (BOTH EYES)
     Route: 065

REACTIONS (3)
  - Product physical consistency issue [Unknown]
  - Product packaging quantity issue [Unknown]
  - Eye discharge [Recovered/Resolved]

NARRATIVE: CASE EVENT DATE: 20210817
